FAERS Safety Report 4495418-5 (Version None)
Quarter: 2004Q4

REPORT INFORMATION
  Report Type: 
  Country: None (occurrence: None)
  Receive Date: 20041108
  Receipt Date: 20041026
  Transmission Date: 20050328
  Serious: Yes (Hospitalization, Other)
  Sender: FDA-Public Use
  Company Number: GB-BRISTOL-MYERS SQUIBB COMPANY-12745881

PATIENT
  Age: 6 Decade
  Sex: Female

DRUGS (1)
  1. PARAPLATIN [Suspect]
     Indication: OVARIAN CANCER
     Route: 042

REACTIONS (2)
  - BLINDNESS UNILATERAL [None]
  - OPTIC NEURITIS [None]
